FAERS Safety Report 10586063 (Version 3)
Quarter: 2015Q2

REPORT INFORMATION
  Report Type: Spontaneous
  Country: CA (occurrence: CA)
  Receive Date: 20141115
  Receipt Date: 20150429
  Transmission Date: 20150821
  Serious: Yes (Death)
  Sender: FDA-Public Use
  Company Number: CA-JNJFOC-20141107833

PATIENT
  Sex: Female
  Weight: 50 kg

DRUGS (2)
  1. ALCOHOL. [Suspect]
     Active Substance: ALCOHOL
     Indication: PRODUCT USED FOR UNKNOWN INDICATION
     Route: 065
  2. TYLENOL [Suspect]
     Active Substance: ACETAMINOPHEN
     Indication: PRODUCT USED FOR UNKNOWN INDICATION
     Route: 048
     Dates: start: 20140206

REACTIONS (4)
  - Overdose [Fatal]
  - Hepatic failure [Fatal]
  - Toxicity to various agents [Fatal]
  - Unresponsive to stimuli [Unknown]
